FAERS Safety Report 6521515-6 (Version None)
Quarter: 2009Q4

REPORT INFORMATION
  Report Type: 
  Country: None (occurrence: None)
  Receive Date: 20091230
  Receipt Date: 20091218
  Transmission Date: 20100525
  Serious: Yes (Other)
  Sender: FDA-Public Use
  Company Number: JP-PFIZER INC-2009312165

PATIENT
  Age: 73 Year
  Sex: Male

DRUGS (4)
  1. ADRIACIN [Suspect]
     Indication: BLADDER CANCER
     Dosage: 30 MG
     Route: 043
     Dates: start: 20091007, end: 20091007
  2. NICARPINE [Concomitant]
     Dosage: 2 MG
     Route: 042
     Dates: start: 20091007, end: 20091007
  3. VOLTAREN [Concomitant]
     Dosage: 25 MG
     Route: 051
     Dates: start: 20091007, end: 20091007
  4. CEFAZOLIN SODIUM [Concomitant]
     Dosage: 1 G, 2X/DAY
     Route: 042
     Dates: start: 20091007, end: 20091008

REACTIONS (1)
  - ALLERGIC CYSTITIS [None]
